FAERS Safety Report 8522228-1 (Version None)
Quarter: 2012Q3

REPORT INFORMATION
  Report Type: 
  Country: None (occurrence: None)
  Receive Date: 20120709
  Receipt Date: 20120628
  Transmission Date: 20120928
  Serious: Yes (Other)
  Sender: FDA-Public Use
  Company Number: ACO_30960_2012

PATIENT
  Age: 66 Year
  Sex: Male

DRUGS (2)
  1. AMPYRA [Suspect]
     Indication: PRODUCT USED FOR UNKNOWN INDICATION
     Dosage: 10 MG, BID, ORAL
     Route: 048
     Dates: start: 20120301
  2. CELEBREX [Concomitant]

REACTIONS (4)
  - ANXIETY [None]
  - HIP ARTHROPLASTY [None]
  - MYALGIA [None]
  - ARTHRITIS [None]
